FAERS Safety Report 7301871-1 (Version None)
Quarter: 2011Q1

REPORT INFORMATION
  Report Type: 
  Country: None (occurrence: None)
  Receive Date: 20110218
  Receipt Date: 20110209
  Transmission Date: 20110831
  Serious: Yes (Other)
  Sender: FDA-Public Use
  Company Number: FR-SANOFI-AVENTIS-2011SA009476

PATIENT
  Sex: Male

DRUGS (2)
  1. MULTAQ [Suspect]
     Route: 048
     Dates: end: 20110101
  2. BETA BLOCKING AGENTS [Concomitant]

REACTIONS (2)
  - CHOLESTASIS [None]
  - ALANINE AMINOTRANSFERASE INCREASED [None]
